FAERS Safety Report 17366197 (Version 2)
Quarter: 2020Q1

REPORT INFORMATION
  Report Type: Spontaneous
  Country: US (occurrence: US)
  Receive Date: 20200204
  Receipt Date: 20200331
  Transmission Date: 20200409
  Serious: No
  Sender: FDA-Public Use
  Company Number: US-PFIZER INC-2020043417

PATIENT
  Age: 84 Year
  Sex: Male
  Weight: 81.65 kg

DRUGS (7)
  1. CELEBREX [Suspect]
     Active Substance: CELECOXIB
     Dosage: UNK
  2. PENTOSAN POLYSULFATE [Concomitant]
     Active Substance: PENTOSAN POLYSULFATE
     Indication: MICTURITION URGENCY
     Dosage: 300 MG, DAILY (ONE PILL IN MORNING AND ONE PILL AT NIGHT, EACH 150MG)
     Route: 048
  3. TOVIAZ [Suspect]
     Active Substance: FESOTERODINE FUMARATE
     Indication: URINARY INCONTINENCE
     Dosage: 12 MG, DAILY(4 MG IN THE MORNING AND THE 8 MG AT NIGHT)
  4. TOVIAZ [Suspect]
     Active Substance: FESOTERODINE FUMARATE
     Dosage: UNK
     Dates: start: 20200315
  5. TOVIAZ [Suspect]
     Active Substance: FESOTERODINE FUMARATE
     Dosage: 4 MG, 1X/DAY (4MG TABLETS BY MOUTH IN THE MORNING)
     Route: 048
  6. TOVIAZ [Suspect]
     Active Substance: FESOTERODINE FUMARATE
     Dosage: 8 MG, 1X/DAY(8MG TABLETS BY MOUTH AT NIGHT)
     Route: 048
  7. TAMSULOSIN HCL [Concomitant]
     Active Substance: TAMSULOSIN HYDROCHLORIDE
     Indication: MICTURITION URGENCY
     Dosage: 0.4 MG, 1X/DAY( TAKE 30 MINUTES AFTER BREAKFAST)
     Route: 048

REACTIONS (4)
  - Body height decreased [Unknown]
  - Cerebral disorder [Unknown]
  - Feeling abnormal [Unknown]
  - Intentional product use issue [Unknown]
